FAERS Safety Report 4628918-5 (Version None)
Quarter: 2005Q2

REPORT INFORMATION
  Report Type: 
  Country: None (occurrence: None)
  Receive Date: 20050406
  Receipt Date: 20050323
  Transmission Date: 20051028
  Serious: Yes (Other)
  Sender: FDA-Public Use
  Company Number: A212867

PATIENT
  Age: 77 Year
  Sex: Male
  Weight: 106.5953 kg

DRUGS (16)
  1. TIKOSYN [Suspect]
     Indication: ATRIAL FIBRILLATION
     Dosage: 1000 MCG (500 MCG, BID), ORAL
     Route: 048
     Dates: start: 20010906
  2. CIPRO [Suspect]
     Indication: BRONCHIECTASIS
     Dosage: ORAL
     Route: 048
  3. CIPRO [Suspect]
     Indication: LUNG INJURY
     Dosage: ORAL
     Route: 048
  4. LEVOFLOXACIN [Suspect]
     Indication: BRONCHIECTASIS
  5. LEVOFLOXACIN [Suspect]
     Indication: LUNG INJURY
  6. CLAVULIN (AMOXICILLIN TRIHYDRATE, CLAVULANATE POTASSIUM) [Suspect]
     Indication: BRONCHIECTASIS
  7. CLAVULIN (AMOXICILLIN TRIHYDRATE, CLAVULANATE POTASSIUM) [Suspect]
     Indication: LUNG INJURY
  8. DIURETICS (DIURETICS) [Suspect]
     Indication: ILL-DEFINED DISORDER
  9. ASPIRIN [Concomitant]
  10. VITAMINS (VITAMINS) [Concomitant]
  11. IRON (IRON) [Concomitant]
  12. RAMIPRIL [Concomitant]
  13. ZALEPLON (ZALEPLON) [Concomitant]
  14. FUROSEMIDE [Concomitant]
  15. AMOXICILLIN [Concomitant]
  16. LISINOPRIL [Concomitant]

REACTIONS (9)
  - ASTHENIA [None]
  - CHRONIC OBSTRUCTIVE PULMONARY DISEASE [None]
  - DILATATION VENTRICULAR [None]
  - FATIGUE [None]
  - GASTRIC INFECTION [None]
  - HEART RATE IRREGULAR [None]
  - LOWER RESPIRATORY TRACT INFECTION [None]
  - PROSTATE INFECTION [None]
  - PULMONARY HYPERTENSION [None]
